FAERS Safety Report 7356382-4 (Version None)
Quarter: 2011Q1

REPORT INFORMATION
  Report Type: 
  Country: None (occurrence: None)
  Receive Date: 20110316
  Receipt Date: 20110310
  Transmission Date: 20110831
  Serious: Yes (Hospitalization)
  Sender: FDA-Public Use
  Company Number: US-ELI_LILLY_AND_COMPANY-US201103003655

PATIENT
  Sex: Female

DRUGS (2)
  1. HUMULIN N [Suspect]
     Indication: DIABETES MELLITUS
     Dosage: 20 U, EACH EVENING
  2. HUMALOG [Suspect]
     Indication: DIABETES MELLITUS
     Dosage: UNK, 2/D

REACTIONS (6)
  - JOINT SWELLING [None]
  - FATIGUE [None]
  - DIARRHOEA [None]
  - VOMITING [None]
  - SOMNOLENCE [None]
  - DECREASED APPETITE [None]
